FAERS Safety Report 5714209-8 (Version None)
Quarter: 2008Q2

REPORT INFORMATION
  Report Type: 
  Country: None (occurrence: None)
  Receive Date: 20080423
  Receipt Date: 20080416
  Transmission Date: 20081010
  Serious: Yes (Hospitalization)
  Sender: FDA-Public Use
  Company Number: PHEH2008US03826

PATIENT
  Age: 61 Year
  Sex: Female
  Weight: 74.829 kg

DRUGS (9)
  1. TEGRETOL [Suspect]
     Indication: MIGRAINE
  2. CHANTIX [Suspect]
     Indication: SMOKING CESSATION THERAPY
     Dates: start: 20060101
  3. PREMARIN [Concomitant]
     Indication: MENOPAUSE
  4. LISINOPRIL [Concomitant]
     Indication: HYPERTENSION
  5. SEROQUEL [Concomitant]
  6. KLONOPIN [Concomitant]
  7. HYDROCHLOROTHIAZIDE [Concomitant]
  8. RISPERDAL [Concomitant]
  9. LAMICTAL [Concomitant]

REACTIONS (11)
  - ANXIETY [None]
  - COLITIS ULCERATIVE [None]
  - CONDITION AGGRAVATED [None]
  - DEPRESSION [None]
  - GASTRIC ULCER [None]
  - IMMUNE SYSTEM DISORDER [None]
  - MALAISE [None]
  - MIGRAINE [None]
  - MOOD ALTERED [None]
  - SINUS HEADACHE [None]
  - TENSION HEADACHE [None]
